FAERS Safety Report 5894907-6 (Version None)
Quarter: 2008Q3

REPORT INFORMATION
  Report Type: 
  Country: None (occurrence: None)
  Receive Date: 20080924
  Receipt Date: 20080916
  Transmission Date: 20090109
  Serious: Yes (Hospitalization)
  Sender: FDA-Public Use
  Company Number: PHHY2008PT21584

PATIENT
  Sex: Female

DRUGS (2)
  1. ACLASTA [Suspect]
     Indication: OSTEITIS DEFORMANS
     Dosage: 5 MG/DAY
     Route: 042
     Dates: start: 20080825, end: 20080825
  2. CALCIUM D SANDOZ [Concomitant]
     Indication: HYPOCALCAEMIA
     Dosage: 2 TABLET/DAY
     Route: 048
     Dates: start: 20080822

REACTIONS (2)
  - HYPOCALCAEMIA [None]
  - LATENT TETANY [None]
